FAERS Safety Report 5199953-6 (Version None)
Quarter: 2007Q1

REPORT INFORMATION
  Report Type: 
  Country: None (occurrence: None)
  Receive Date: 20070103
  Receipt Date: 20061218
  Transmission Date: 20070707
  Serious: Yes (Other)
  Sender: FDA-Public Use
  Company Number: SPV1-2006-02286

PATIENT
  Sex: Male

DRUGS (1)
  1. DAYTRANA [Suspect]
     Dosage: 10 MG, TRANSDERMAL
     Route: 062

REACTIONS (3)
  - ABNORMAL BEHAVIOUR [None]
  - CATATONIA [None]
  - PHARMACEUTICAL PRODUCT COMPLAINT [None]
